FAERS Safety Report 9780424 (Version 1)
Quarter: 2013Q4

REPORT INFORMATION
  Report Type: Spontaneous
  Country: US (occurrence: US)
  Receive Date: 20131224
  Receipt Date: 20131224
  Transmission Date: 20140711
  Serious: No
  Sender: FDA-Public Use
  Company Number: US-BIOGENIDEC-2013BI122111

PATIENT
  Sex: Female

DRUGS (2)
  1. TYSABRI [Suspect]
     Indication: MULTIPLE SCLEROSIS
     Route: 042
     Dates: start: 20120827, end: 20130603
  2. TECFIDERA [Concomitant]
     Indication: MULTIPLE SCLEROSIS
     Dates: end: 20130814

REACTIONS (8)
  - Visual impairment [Recovered/Resolved]
  - Tremor [Recovered/Resolved]
  - Restless legs syndrome [Recovered/Resolved]
  - Cognitive disorder [Unknown]
  - Memory impairment [Unknown]
  - Aphasia [Unknown]
  - Pruritus [Recovered/Resolved]
  - Multiple sclerosis relapse [Recovered/Resolved]
